FAERS Safety Report 8154729-2 (Version None)
Quarter: 2012Q1

REPORT INFORMATION
  Report Type: 
  Country: None (occurrence: None)
  Receive Date: 20120221
  Receipt Date: 20120206
  Transmission Date: 20120608
  Serious: Yes (Other)
  Sender: FDA-Public Use
  Company Number: PHFR2012GB000969

PATIENT
  Age: 59 Year
  Sex: Female

DRUGS (2)
  1. LEVOTHYROXINE SODIUM [Concomitant]
     Dosage: UNK UKN, UNK
  2. FEMARA [Suspect]
     Indication: BREAST CANCER
     Dosage: UNK UKN, UNK
     Dates: start: 20101001, end: 20111101

REACTIONS (3)
  - DEPRESSED MOOD [None]
  - MEMORY IMPAIRMENT [None]
  - AMNESIA [None]
